FAERS Safety Report 7935175-0 (Version None)
Quarter: 2011Q4

REPORT INFORMATION
  Report Type: 
  Country: None (occurrence: None)
  Receive Date: 20111122
  Receipt Date: 20111107
  Transmission Date: 20120403
  Serious: Yes (Hospitalization, Other)
  Sender: FDA-Public Use
  Company Number: US-ROCHE-1002589

PATIENT
  Sex: Female

DRUGS (8)
  1. HERCEPTIN [Suspect]
     Indication: BREAST CANCER
     Dosage: GIVEN OVER 90 MIN FOR WEEK 1
     Route: 042
     Dates: start: 20090212
  2. HERCEPTIN [Suspect]
     Dosage: GIVEN OVER 30 MIN FROM WEEK 2
     Route: 042
     Dates: start: 20090201
  3. FLUOROURACIL [Suspect]
     Indication: BREAST CANCER
     Dosage: ON DAY 1 ROUTE IVP
     Dates: start: 20101002
  4. EPIRUBICIN HYDROCHLORIDE [Suspect]
     Indication: BREAST CANCER
     Dosage: OVER 15 MIN ON DAY 1
     Route: 042
     Dates: start: 20101002
  5. PACLITAXEL [Suspect]
     Indication: BREAST CANCER
     Dosage: OVER 60 MIN WEEKLY
     Route: 042
     Dates: start: 20090212
  6. HERCEPTIN [Suspect]
     Route: 042
  7. HERCEPTIN [Suspect]
     Route: 042
     Dates: start: 20101002
  8. CYCLOPHOSPHAMIDE [Suspect]
     Indication: BREAST CANCER
     Dosage: OVER 30 MIN ON DAY 1
     Route: 042
     Dates: start: 20101002

REACTIONS (8)
  - LUNG INFECTION [None]
  - PLATELET COUNT DECREASED [None]
  - ANAEMIA [None]
  - HYPOTENSION [None]
  - MYOCARDIAL INFARCTION [None]
  - NEUTROPHIL COUNT DECREASED [None]
  - WHITE BLOOD CELL COUNT DECREASED [None]
  - HYPOALBUMINAEMIA [None]
